FAERS Safety Report 9631669 (Version 2)
Quarter: 2013Q4

REPORT INFORMATION
  Report Type: Report from Study
  Country: JP (occurrence: JP)
  Receive Date: 20131018
  Receipt Date: 20131108
  Transmission Date: 20140711
  Serious: No
  Sender: FDA-Public Use
  Company Number: JP-JNJFOC-20131005795

PATIENT
  Age: 73 Year
  Sex: Female
  Weight: 43 kg

DRUGS (21)
  1. SIMPONI [Suspect]
     Indication: RHEUMATOID ARTHRITIS
     Route: 058
     Dates: start: 20130801, end: 20130801
  2. SIMPONI [Suspect]
     Indication: RHEUMATOID ARTHRITIS
     Route: 058
     Dates: start: 20130905
  3. SIMPONI [Suspect]
     Indication: RHEUMATOID ARTHRITIS
     Route: 058
     Dates: start: 20130509, end: 20130509
  4. SIMPONI [Suspect]
     Indication: RHEUMATOID ARTHRITIS
     Route: 058
     Dates: start: 20130411, end: 20130411
  5. SIMPONI [Suspect]
     Indication: RHEUMATOID ARTHRITIS
     Route: 058
     Dates: start: 20130606, end: 20130606
  6. METHOTREXATE [Suspect]
     Indication: RHEUMATOID ARTHRITIS
     Route: 065
     Dates: start: 20130513, end: 20130603
  7. METHOTREXATE [Suspect]
     Indication: RHEUMATOID ARTHRITIS
     Route: 065
     Dates: start: 20130610, end: 20130701
  8. PARIET [Concomitant]
     Indication: GASTRIC ULCER
     Route: 048
  9. GASLON N [Concomitant]
     Indication: GASTRIC ULCER
     Route: 048
  10. ASPARA-CA [Concomitant]
     Indication: PROPHYLAXIS
     Route: 048
  11. KOLANTYL(R) [Concomitant]
     Indication: GASTRIC ULCER
     Route: 048
  12. CLINORIL [Concomitant]
     Indication: RHEUMATOID ARTHRITIS
     Route: 048
  13. PREDONINE [Concomitant]
     Indication: RHEUMATOID ARTHRITIS
     Route: 048
     Dates: start: 20130607, end: 20130704
  14. PREDONINE [Concomitant]
     Indication: RHEUMATOID ARTHRITIS
     Route: 048
     Dates: start: 20130509, end: 20130606
  15. PREDONINE [Concomitant]
     Indication: RHEUMATOID ARTHRITIS
     Route: 048
     Dates: start: 20130705, end: 20130711
  16. PREDONINE [Concomitant]
     Indication: RHEUMATOID ARTHRITIS
     Route: 048
     Dates: start: 20130712, end: 20130801
  17. PREDONINE [Concomitant]
     Indication: RHEUMATOID ARTHRITIS
     Route: 048
     Dates: start: 20130802
  18. PREDONINE [Concomitant]
     Indication: RHEUMATOID ARTHRITIS
     Route: 048
     Dates: end: 20130509
  19. ALFAROL [Concomitant]
     Indication: PROPHYLAXIS
     Route: 048
  20. ISCOTIN [Concomitant]
     Indication: PROPHYLAXIS
     Route: 065
  21. CALONAL [Concomitant]
     Route: 065
     Dates: start: 20130918

REACTIONS (1)
  - Cell marker increased [Recovered/Resolved]
